FAERS Safety Report 17854370 (Version 1)
Quarter: 2020Q2

REPORT INFORMATION
  Report Type: Spontaneous
  Country: PT (occurrence: PT)
  Receive Date: 20200603
  Receipt Date: 20200603
  Transmission Date: 20200714
  Serious: Yes (Other)
  Sender: FDA-Public Use
  Company Number: PT-TEVA-2020-PT-1242816

PATIENT
  Age: 75 Year
  Sex: Male
  Weight: 79 kg

DRUGS (8)
  1. PANTOPRAZOLE [Concomitant]
     Active Substance: PANTOPRAZOLE
     Route: 048
  2. STRUCTUM [Concomitant]
     Active Substance: SODIUM CHONDROITIN SULFATE
     Route: 048
  3. NITROMINT [Concomitant]
     Active Substance: NITROGLYCERIN
     Route: 048
  4. TROMALYT [Concomitant]
     Active Substance: ASPIRIN
     Route: 048
  5. EDARCLOR [Concomitant]
     Route: 048
  6. CLOPIDOGREL [Suspect]
     Active Substance: CLOPIDOGREL BISULFATE
     Indication: PERIPHERAL ARTERIAL OCCLUSIVE DISEASE
     Dosage: 1 DOSAGE FORMS
     Route: 048
     Dates: start: 20200222
  7. BISOPROLOL [Concomitant]
     Active Substance: BISOPROLOL
     Route: 048
  8. ATORVASTATIN [Concomitant]
     Active Substance: ATORVASTATIN
     Route: 048

REACTIONS (1)
  - Dizziness [Recovered/Resolved]

NARRATIVE: CASE EVENT DATE: 20200222
